FAERS Safety Report 13736460 (Version 1)
Quarter: 2017Q3

REPORT INFORMATION
  Report Type: Spontaneous
  Country: US (occurrence: US)
  Receive Date: 20170710
  Receipt Date: 20170710
  Transmission Date: 20171127
  Serious: Yes (Death)
  Sender: FDA-Public Use
  Company Number: US-PFIZER INC-2729049

PATIENT
  Age: 52 Year
  Sex: Male

DRUGS (5)
  1. DILTIAZEM HCL [Suspect]
     Active Substance: DILTIAZEM HYDROCHLORIDE
     Dosage: NOT REPORTED
     Route: 051
     Dates: start: 20130101
  2. CYCLOBENZAPRINE. [Suspect]
     Active Substance: CYCLOBENZAPRINE
     Dosage: NOT REPORTED
     Dates: start: 20130101
  3. CODEINE [Suspect]
     Active Substance: CODEINE
     Dosage: NOT REPORTED
     Route: 051
     Dates: start: 20130101
  4. QUININE [Suspect]
     Active Substance: QUININE
     Dosage: NOT REPORTED
     Dates: start: 20130101
  5. HEROIN [Suspect]
     Active Substance: DIAMORPHINE
     Dosage: NOT REPORTED
     Dates: start: 20130101

REACTIONS (2)
  - Drug abuse [Fatal]
  - Toxicity to various agents [Fatal]

NARRATIVE: CASE EVENT DATE: 20130101
